FAERS Safety Report 4462258-2 (Version None)
Quarter: 2004Q3

REPORT INFORMATION
  Report Type: 
  Country: None (occurrence: None)
  Receive Date: 20040929
  Receipt Date: 20040419
  Transmission Date: 20050211
  Serious: Yes (Other)
  Sender: FDA-Public Use
  Company Number: JP-GLAXOSMITHKLINE-B0330981A

PATIENT
  Age: 55 Year
  Sex: Male
  Weight: 49 kg

DRUGS (1)
  1. MODACIN [Suspect]
     Indication: PNEUMONIA
     Route: 042
     Dates: start: 20040415, end: 20040416

REACTIONS (2)
  - INJECTION SITE SWELLING [None]
  - VASCULITIS [None]
